FAERS Safety Report 19989447 (Version 1)
Quarter: 2021Q4

REPORT INFORMATION
  Report Type: Spontaneous
  Country: US (occurrence: US)
  Receive Date: 20211025
  Receipt Date: 20211025
  Transmission Date: 20220304
  Serious: No
  Sender: FDA-Public Use
  Company Number: US-SAPTALIS PHARMACEUTICALS,LLC-000117

PATIENT
  Sex: Female

DRUGS (2)
  1. CLOBETASOL PROPIONATE [Suspect]
     Active Substance: CLOBETASOL PROPIONATE
     Indication: Pruritus
     Dosage: 3 TIMES, ONCE DAILY
     Route: 061
     Dates: start: 20210917
  2. LISINOPRIL [Concomitant]
     Active Substance: LISINOPRIL
     Indication: Hypertension
     Dosage: ONCE A DAY

REACTIONS (4)
  - Gastrointestinal tract irritation [Unknown]
  - Trichorrhexis [Unknown]
  - Hair texture abnormal [Unknown]
  - Hair texture abnormal [Unknown]
